FAERS Safety Report 7769058-6 (Version None)
Quarter: 2011Q3

REPORT INFORMATION
  Report Type: 
  Country: None (occurrence: None)
  Receive Date: 20110922
  Receipt Date: 20110418
  Transmission Date: 20111222
  Serious: Yes (Other)
  Sender: FDA-Public Use
  Company Number: US-ASTRAZENECA-2007UW04797

PATIENT
  Age: 40 Year
  Sex: Male
  Weight: 86.2 kg

DRUGS (10)
  1. RISPERDAL [Concomitant]
     Dates: start: 20040101, end: 20060101
  2. FLOMAX [Concomitant]
  3. TYLENOL-500 [Concomitant]
  4. SEROQUEL [Suspect]
     Indication: DEPRESSION
     Route: 048
     Dates: start: 20040101
  5. SEROQUEL [Suspect]
     Indication: SCHIZOPHRENIA
     Route: 048
     Dates: start: 20040101
  6. SEROQUEL [Suspect]
     Dosage: 300 MH HS AND 25 T.I.D
     Route: 048
     Dates: start: 20040927
  7. ZOLOFT [Concomitant]
     Dates: start: 20040927
  8. KLONOPIN [Concomitant]
     Dosage: 0.5 TO 1 B.I.D TO T.I.D PRN, 1 MG HS
     Dates: start: 20040927
  9. SEROQUEL [Suspect]
     Dosage: 300 MH HS AND 25 T.I.D
     Route: 048
     Dates: start: 20040927
  10. LOPID [Concomitant]

REACTIONS (6)
  - BLOOD TRIGLYCERIDES INCREASED [None]
  - TYPE 2 DIABETES MELLITUS [None]
  - KETOACIDOSIS [None]
  - HYPERLIPIDAEMIA [None]
  - PANCREATITIS [None]
  - BLOOD CHOLESTEROL INCREASED [None]
